FAERS Safety Report 25873899 (Version 2)
Quarter: 2025Q4

REPORT INFORMATION
  Report Type: Spontaneous
  Country: EU (occurrence: EU)
  Receive Date: 20251002
  Receipt Date: 20251030
  Transmission Date: 20260117
  Serious: Yes (Hospitalization)
  Sender: RANBAXY
  Company Number: EU-AFSSAPS-TO2025000912

PATIENT
  Age: 73 Year
  Sex: Male
  Weight: 100 kg

DRUGS (2)
  1. ALLOPURINOL [Interacting]
     Active Substance: ALLOPURINOL
     Indication: Blood uric acid increased
     Dosage: 200 MILLIGRAM, DAILY, 1-0-0
     Route: 048
     Dates: start: 20250304
  2. AZATHIOPRINE SODIUM [Interacting]
     Active Substance: AZATHIOPRINE SODIUM
     Indication: Crohn^s disease
     Dosage: 100 MILLIGRAM, DAILY, 1-0-1
     Route: 048

REACTIONS (3)
  - Metabolic acidosis [Not Recovered/Not Resolved]
  - Anaemia [Recovering/Resolving]
  - Thrombocytopenia [Recovering/Resolving]

NARRATIVE: CASE EVENT DATE: 20250605
